FAERS Safety Report 18911746 (Version 2)
Quarter: 2021Q1

REPORT INFORMATION
  Report Type: Spontaneous
  Country: JP (occurrence: JP)
  Receive Date: 20210218
  Receipt Date: 20210308
  Transmission Date: 20210420
  Serious: Yes (Other)
  Sender: FDA-Public Use
  Company Number: JP-FERRINGPH-2020FE07362

PATIENT
  Age: 76 Year
  Sex: Male

DRUGS (14)
  1. CLENAFIN [Concomitant]
     Active Substance: EFINACONAZOLE
     Dosage: UNK
     Dates: start: 202002, end: 20200308
  2. LOXONIN [Concomitant]
     Active Substance: LOXOPROFEN SODIUM
     Dosage: UNK
  3. PIMURO [SENNA ALEXANDRINA] [Concomitant]
     Dosage: UNK
  4. GONAX [Suspect]
     Active Substance: DEGARELIX
     Indication: PROSTATE CANCER
     Dosage: 480 MG, EVERY 12 WEEKS
     Route: 058
     Dates: start: 20200428, end: 20200714
  5. GONAX [Suspect]
     Active Substance: DEGARELIX
     Dosage: 240 MG, ONCE/SINGLE
     Route: 058
     Dates: start: 20180306, end: 20180306
  6. GONAX [Suspect]
     Active Substance: DEGARELIX
     Dosage: 80 MG, MONTHLY
     Route: 058
     Dates: start: 20180403, end: 20200331
  7. ASTAT [LANOCONAZOLE] [Concomitant]
     Dosage: UNK
     Dates: start: 202002, end: 20200308
  8. XTANDI [Concomitant]
     Active Substance: ENZALUTAMIDE
     Dosage: UNK
     Dates: start: 20180306
  9. GONAX [Suspect]
     Active Substance: DEGARELIX
     Indication: PROSTATE CANCER
     Dosage: 80 UNK
     Route: 058
     Dates: start: 20201006
  10. MUCOSTA [Concomitant]
     Active Substance: REBAMIPIDE
     Dosage: UNK
  11. CELECOX [Concomitant]
     Active Substance: CELECOXIB
     Dosage: UNK
  12. BIO?THREE [Concomitant]
     Active Substance: HERBALS
     Dosage: UNK
  13. ZOLPIDEM TARTRATE. [Concomitant]
     Active Substance: ZOLPIDEM TARTRATE
     Dosage: UNK
     Dates: start: 20180809
  14. HYALURONATE NA [Concomitant]
     Active Substance: HYALURONATE SODIUM
     Dosage: UNK

REACTIONS (6)
  - Supraventricular extrasystoles [Not Recovered/Not Resolved]
  - Injection site swelling [Recovering/Resolving]
  - Pyogenic granuloma [Recovered/Resolved]
  - Multiple system atrophy [Not Recovered/Not Resolved]
  - Arrhythmia [Not Recovered/Not Resolved]
  - Dizziness [Not Recovered/Not Resolved]

NARRATIVE: CASE EVENT DATE: 20190130
